FAERS Safety Report 4937218-5 (Version None)
Quarter: 2006Q1

REPORT INFORMATION
  Report Type: 
  Country: None (occurrence: None)
  Receive Date: 20060307
  Receipt Date: 20060307
  Transmission Date: 20060701
  Serious: Yes (Hospitalization)
  Sender: FDA-Public Use
  Company Number: None

PATIENT
  Age: 68 Year
  Sex: Male
  Weight: 83.5 kg

DRUGS (1)
  1. WARFARIN SODIUM [Suspect]
     Indication: DEEP VEIN THROMBOSIS
     Dosage: 5 MG QD PO
     Route: 048

REACTIONS (11)
  - ASTHENIA [None]
  - BLOOD CREATININE INCREASED [None]
  - BLOOD SODIUM INCREASED [None]
  - BLOOD UREA INCREASED [None]
  - DEHYDRATION [None]
  - HAEMORRHAGE [None]
  - INTERNATIONAL NORMALISED RATIO INCREASED [None]
  - MUCOSAL INFLAMMATION [None]
  - ORAL INTAKE REDUCED [None]
  - PANCYTOPENIA [None]
  - TONGUE DISORDER [None]
